FAERS Safety Report 9788639 (Version 1)
Quarter: 2013Q4

REPORT INFORMATION
  Report Type: Spontaneous
  Country: FR (occurrence: FR)
  Receive Date: 20131230
  Receipt Date: 20131230
  Transmission Date: 20140711
  Serious: Yes (Hospitalization)
  Sender: FDA-Public Use
  Company Number: FR-FRI-1000052523

PATIENT
  Age: 38 Year
  Sex: Male

DRUGS (3)
  1. ACAMPROSATE [Suspect]
     Route: 048
     Dates: start: 20131105, end: 20131113
  2. DEPAKOTE [Suspect]
     Route: 048
     Dates: start: 20131105, end: 20131113
  3. SERESTA [Suspect]
     Route: 048
     Dates: start: 20131105, end: 20131114

REACTIONS (4)
  - Pharyngeal oedema [Recovering/Resolving]
  - Toxic skin eruption [Recovering/Resolving]
  - Urticaria [Recovering/Resolving]
  - Face oedema [Recovering/Resolving]
